FAERS Safety Report 18250093 (Version 4)
Quarter: 2021Q1

REPORT INFORMATION
  Report Type: Report from Study
  Country: US (occurrence: US)
  Receive Date: 20200910
  Receipt Date: 20210111
  Transmission Date: 20210419
  Serious: Yes (Other)
  Sender: FDA-Public Use
  Company Number: US-BIOGEN-2018BI00596550

PATIENT
  Age: 47 Year
  Sex: Female

DRUGS (2)
  1. TYSABRI [Suspect]
     Active Substance: NATALIZUMAB
     Route: 065
     Dates: start: 2013
  2. TYSABRI [Suspect]
     Active Substance: NATALIZUMAB
     Indication: MULTIPLE SCLEROSIS
     Dosage: INFUSED OVER 1 HOUR
     Route: 050
     Dates: start: 20130110

REACTIONS (2)
  - Prescribed underdose [Not Recovered/Not Resolved]
  - Encephalitis [Not Recovered/Not Resolved]

NARRATIVE: CASE EVENT DATE: 20130110
